FAERS Safety Report 17462317 (Version 1)
Quarter: 2020Q1

REPORT INFORMATION
  Report Type: Spontaneous
  Country: US (occurrence: US)
  Receive Date: 20200226
  Receipt Date: 20200226
  Transmission Date: 20200409
  Serious: No
  Sender: FDA-Public Use
  Company Number: US-NEOS THERAPEUTICS, LP-2019NEO00036

PATIENT
  Sex: Male

DRUGS (2)
  1. ADZENYS XR-ODT [Suspect]
     Active Substance: AMPHETAMINE
     Dosage: 3.1 MG, 1X/DAY
     Route: 048
     Dates: start: 20181226
  2. SEIZURE MEDICATIONS (UNSPECIFIED) [Concomitant]

REACTIONS (2)
  - Weight decreased [Unknown]
  - Decreased appetite [Unknown]
